FAERS Safety Report 16703653 (Version 1)
Quarter: 2019Q3

REPORT INFORMATION
  Report Type: Report from Study
  Country: None (occurrence: EC)
  Receive Date: 20190814
  Receipt Date: 20190814
  Transmission Date: 20191004
  Serious: Yes (Other)
  Sender: FDA-Public Use
  Company Number: EC-ABBVIE-19K-047-2888316-00

PATIENT
  Age: 62 Year
  Sex: Male
  Weight: 62 kg

DRUGS (1)
  1. ZEMPLAR [Suspect]
     Active Substance: PARICALCITOL
     Indication: HYPERPARATHYROIDISM SECONDARY
     Route: 042
     Dates: start: 20171101

REACTIONS (1)
  - Renal transplant [Recovering/Resolving]

NARRATIVE: CASE EVENT DATE: 20190730
